FAERS Safety Report 9567997 (Version 2)
Quarter: 2013Q3

REPORT INFORMATION
  Report Type: Spontaneous
  Country: US (occurrence: US)
  Receive Date: 20130930
  Receipt Date: 20130930
  Transmission Date: 20140515
  Serious: No
  Sender: FDA-Public Use
  Company Number: US-AMGEN-USASP2013012096

PATIENT
  Age: 48 Year
  Sex: Female
  Weight: 87.98 kg

DRUGS (7)
  1. ENBREL [Suspect]
     Indication: RHEUMATOID ARTHRITIS
     Dosage: 50 MG, QWK
     Route: 058
     Dates: start: 20121126, end: 20121126
  2. PERCOCET                           /00446701/ [Concomitant]
     Dosage: UNK
     Route: 048
  3. HUMALOG [Concomitant]
     Dosage: UNK
  4. ESTRADIOL [Concomitant]
     Dosage: UNK
     Route: 048
  5. ASPIRIN [Concomitant]
     Dosage: UNK
     Route: 048
  6. ALEVE [Concomitant]
     Dosage: UNK
     Route: 048
  7. SONATA                             /01454001/ [Concomitant]
     Dosage: UNK
     Route: 048

REACTIONS (4)
  - Feeling hot [Recovered/Resolved]
  - Confusional state [Recovered/Resolved]
  - Feeling abnormal [Recovered/Resolved]
  - Headache [Recovering/Resolving]
